FAERS Safety Report 13785056 (Version 1)
Quarter: 2017Q3

REPORT INFORMATION
  Report Type: Spontaneous
  Country: US (occurrence: US)
  Receive Date: 20170724
  Receipt Date: 20170724
  Transmission Date: 20171127
  Serious: No
  Sender: FDA-Public Use
  Company Number: None

PATIENT
  Age: 9 Year
  Sex: Male

DRUGS (5)
  1. ADEKS CHW [Concomitant]
  2. PULMOZYME [Suspect]
     Active Substance: DORNASE ALFA
     Indication: CYSTIC FIBROSIS
     Dosage: DOSE - 1 AMPULE?ROUTE - VIA NEBULIZER
     Dates: start: 20131203
  3. PREVACID [Concomitant]
     Active Substance: LANSOPRAZOLE
  4. XOPENEX HFA [Concomitant]
     Active Substance: LEVALBUTEROL TARTRATE
  5. SODIUM CHLORIDE. [Concomitant]
     Active Substance: SODIUM CHLORIDE

REACTIONS (2)
  - Drug dose omission [None]
  - Cough [None]

NARRATIVE: CASE EVENT DATE: 20170720
